FAERS Safety Report 24007339 (Version 1)
Quarter: 2024Q2

REPORT INFORMATION
  Report Type: Spontaneous
  Country: JP (occurrence: JP)
  Receive Date: 20240624
  Receipt Date: 20240624
  Transmission Date: 20240716
  Serious: Yes (Death)
  Sender: FDA-Public Use
  Company Number: JP-SAKK-2024SA148351AA

PATIENT
  Age: 60 Year
  Sex: Male

DRUGS (1)
  1. FABRAZYME [Suspect]
     Active Substance: AGALSIDASE BETA
     Indication: Fabry^s disease
     Dosage: UNK
     Route: 041

REACTIONS (4)
  - Fabry^s disease [Fatal]
  - Condition aggravated [Fatal]
  - Condition aggravated [Unknown]
  - Pyrexia [Unknown]

NARRATIVE: CASE EVENT DATE: 20240101
